FAERS Safety Report 9803825 (Version 1)
Quarter: 2014Q1

REPORT INFORMATION
  Report Type: Spontaneous
  Country: US (occurrence: US)
  Receive Date: 20140108
  Receipt Date: 20140108
  Transmission Date: 20141002
  Serious: No
  Sender: FDA-Public Use
  Company Number: US-GLAXOSMITHKLINE-A1044589A

PATIENT
  Age: 52 Year
  Sex: Female

DRUGS (2)
  1. LOVAZA [Suspect]
     Indication: CARDIOVASCULAR EVENT PROPHYLAXIS
     Dosage: 1CAP TWICE PER DAY
     Route: 048
  2. BIRTH CONTROL PILLS [Concomitant]

REACTIONS (4)
  - Abdominal pain upper [Not Recovered/Not Resolved]
  - Flatulence [Unknown]
  - Diarrhoea [Unknown]
  - Product quality issue [Unknown]
